FAERS Safety Report 5105641-4 (Version None)
Quarter: 2006Q3

REPORT INFORMATION
  Report Type: 
  Country: None (occurrence: None)
  Receive Date: 20060731
  Receipt Date: 20060418
  Transmission Date: 20061208
  Serious: Yes (Other)
  Sender: FDA-Public Use
  Company Number: US-JNJFOC-20060404144

PATIENT
  Age: 34 Year
  Sex: Female
  Weight: 54.4316 kg

DRUGS (3)
  1. RISPERDAL [Suspect]
     Indication: SCHIZOPHRENIA
     Dosage: 4 MG, ORAL; 1MG, 1 IN 1 DAY, ORAL
     Route: 048
     Dates: start: 20020801, end: 20060101
  2. RISPERDAL [Suspect]
     Indication: SCHIZOPHRENIA
     Dosage: 4 MG, ORAL; 1MG, 1 IN 1 DAY, ORAL
     Route: 048
     Dates: start: 20060101, end: 20060414
  3. RISPERDAL [Suspect]
     Indication: SCHIZOPHRENIA
     Dosage: 4 MG, ORAL; 1MG, 1 IN 1 DAY, ORAL
     Route: 048
     Dates: start: 20060414

REACTIONS (6)
  - AMENORRHOEA [None]
  - ASTHENIA [None]
  - CONVULSION [None]
  - DEAFNESS UNILATERAL [None]
  - DIZZINESS [None]
  - WEIGHT DECREASED [None]
